FAERS Safety Report 19185442 (Version 1)
Quarter: 2021Q2

REPORT INFORMATION
  Report Type: Spontaneous
  Country: ES (occurrence: ES)
  Receive Date: 20210427
  Receipt Date: 20210427
  Transmission Date: 20210717
  Serious: Yes (Death)
  Sender: FDA-Public Use
  Company Number: ES-CELGENEUS-ESP-20210404819

PATIENT
  Age: 81 Year
  Sex: Female

DRUGS (1)
  1. LUSPATERCEPT. [Suspect]
     Active Substance: LUSPATERCEPT
     Indication: PRODUCT USED FOR UNKNOWN INDICATION
     Route: 058
     Dates: start: 20210323

REACTIONS (2)
  - Disease progression [Fatal]
  - Body temperature abnormal [Unknown]

NARRATIVE: CASE EVENT DATE: 2021
